FAERS Safety Report 5147895-4 (Version None)
Quarter: 2006Q4

REPORT INFORMATION
  Report Type: 
  Country: None (occurrence: None)
  Receive Date: 20061110
  Receipt Date: 20061107
  Transmission Date: 20070319
  Serious: Yes (Other)
  Sender: FDA-Public Use
  Company Number: AU-JNJFOC-20061101859

PATIENT

DRUGS (3)
  1. RISPERDAL CONSTA [Suspect]
     Indication: DRUG EXPOSURE DURING PREGNANCY
     Route: 015
  2. RISPERIDONE [Suspect]
     Indication: DRUG EXPOSURE DURING PREGNANCY
     Route: 015
  3. EPILIM [Concomitant]
     Indication: DRUG EXPOSURE DURING PREGNANCY
     Route: 015

REACTIONS (1)
  - PREMATURE BABY [None]
